FAERS Safety Report 9145915 (Version 1)
Quarter: 2013Q1

REPORT INFORMATION
  Report Type: Spontaneous
  Country: US (occurrence: None)
  Receive Date: 20130207
  Receipt Date: 20130207
  Transmission Date: 20140127
  Serious: Yes (Death)
  Sender: FDA-Public Use
  Company Number: ACO_33969_2013

PATIENT
  Sex: 0

DRUGS (3)
  1. AMPYRA (DALFAMPRIDINE) TABLET [Suspect]
     Indication: MULTIPLE SCLEROSIS
     Route: 048
     Dates: start: 20100504, end: 20101214
  2. SCOPOLAMINE [Suspect]
     Indication: PRODUCT USED FOR UNKNOWN INDICATION
     Dates: end: 20101214
  3. ALL OTHER THERAPEUTIC PRODUCTS [Concomitant]

REACTIONS (6)
  - Gun shot wound [None]
  - Completed suicide [None]
  - Gait disturbance [None]
  - Fall [None]
  - Intentional self-injury [None]
  - Head injury [None]
